APPROVED DRUG PRODUCT: PYRIDOXINE HYDROCHLORIDE
Active Ingredient: PYRIDOXINE HYDROCHLORIDE
Strength: 100MG/ML
Dosage Form/Route: INJECTABLE;INJECTION
Application: A204879 | Product #001
Applicant: MYLAN INSTITUTIONAL LLC
Approved: Jul 14, 2016 | RLD: No | RS: No | Type: DISCN